FAERS Safety Report 7888357-0 (Version None)
Quarter: 2011Q4

REPORT INFORMATION
  Report Type: 
  Country: None (occurrence: None)
  Receive Date: 20111103
  Receipt Date: 20111101
  Transmission Date: 20120403
  Serious: Yes (Other)
  Sender: FDA-Public Use
  Company Number: US-PFIZER INC-2011267474

PATIENT

DRUGS (1)
  1. TIKOSYN [Suspect]
     Dosage: UNK

REACTIONS (1)
  - SURGERY [None]
